FAERS Safety Report 23939485 (Version 2)
Quarter: 2024Q3

REPORT INFORMATION
  Report Type: Spontaneous
  Country: BG (occurrence: BG)
  Receive Date: 20240605
  Receipt Date: 20240702
  Transmission Date: 20241017
  Serious: Yes (Other)
  Sender: ABBVIE
  Company Number: BG-ABBVIE-5780765

PATIENT
  Age: 30 Year
  Sex: Female

DRUGS (2)
  1. HUMIRA [Suspect]
     Active Substance: ADALIMUMAB
     Indication: Crohn^s disease
     Dosage: 160/80/40, FREQUENCY TEXT: EVERY 14 DAYS
     Route: 058
  2. HUMIRA [Suspect]
     Active Substance: ADALIMUMAB
     Dosage: FREQUENCY TEXT: EVERY 14 DAYS
     Route: 058
     Dates: start: 202311

REACTIONS (5)
  - Ileal stenosis [Unknown]
  - Abdominal pain [Unknown]
  - Frequent bowel movements [Unknown]
  - Drug ineffective [Unknown]
  - General symptom [Not Recovered/Not Resolved]

NARRATIVE: CASE EVENT DATE: 20240105
